FAERS Safety Report 9140617 (Version 1)
Quarter: 2013Q1

REPORT INFORMATION
  Report Type: Spontaneous
  Country: US (occurrence: US)
  Receive Date: 20130305
  Receipt Date: 20130305
  Transmission Date: 20140127
  Serious: Yes (Other)
  Sender: FDA-Public Use
  Company Number: US-BAYER-2013-027678

PATIENT
  Age: 46 Year
  Sex: Female

DRUGS (2)
  1. YASMIN [Suspect]
     Indication: CONTRACEPTION
     Route: 048
  2. OCELLA [Suspect]
     Indication: CONTRACEPTION

REACTIONS (1)
  - Deep vein thrombosis [Recovered/Resolved]
